FAERS Safety Report 17531533 (Version 1)
Quarter: 2020Q1

REPORT INFORMATION
  Report Type: Spontaneous
  Country: US (occurrence: US)
  Receive Date: 20200311
  Receipt Date: 20200311
  Transmission Date: 20200409
  Serious: No
  Sender: FDA-Public Use
  Company Number: None

PATIENT
  Age: 10 Year
  Sex: Male
  Weight: 31.5 kg

DRUGS (1)
  1. MIRALAX [Suspect]
     Active Substance: POLYETHYLENE GLYCOL 3350
     Indication: CONSTIPATION
     Route: 048

REACTIONS (9)
  - Blood electrolytes abnormal [None]
  - Weight decreased [None]
  - Panic attack [None]
  - Headache [None]
  - Crying [None]
  - Paranoia [None]
  - Muscle spasms [None]
  - Aggression [None]
  - Conversion disorder [None]

NARRATIVE: CASE EVENT DATE: 20191210
